FAERS Safety Report 18641606 (Version 2)
Quarter: 2021Q1

REPORT INFORMATION
  Report Type: Spontaneous
  Country: US (occurrence: US)
  Receive Date: 20201221
  Receipt Date: 20210323
  Transmission Date: 20210419
  Serious: No
  Sender: FDA-Public Use
  Company Number: US-ALLERGAN-2037113US

PATIENT
  Age: 73 Year
  Sex: Male

DRUGS (1)
  1. DURYSTA [Suspect]
     Active Substance: BIMATOPROST
     Indication: CORNEAL DISORDER
     Dosage: 0.01 MG, SINGLE
     Route: 031
     Dates: start: 20200908, end: 20200908

REACTIONS (4)
  - Off label use [Unknown]
  - Complication of device insertion [Unknown]
  - Product administered at inappropriate site [Unknown]
  - Device deployment issue [Unknown]

NARRATIVE: CASE EVENT DATE: 20200908
